FAERS Safety Report 5335721-X (Version None)
Quarter: 2007Q2

REPORT INFORMATION
  Report Type: 
  Country: None (occurrence: None)
  Receive Date: 20070322
  Receipt Date: 20061221
  Transmission Date: 20071010
  Serious: No
  Sender: FDA-Public Use
  Company Number: 2006US002974

PATIENT
  Sex: Female

DRUGS (5)
  1. VESICARE [Suspect]
     Indication: URINARY INCONTINENCE
     Dosage: 5 MG, ORAL
     Route: 048
     Dates: start: 20050101
  2. COUMDIN (WARFARIN SODIUM) [Concomitant]
  3. CARBIDOPA (CARBIDOA) [Concomitant]
  4. LISINOPRIL (LISINOPRIL DIHYDRATE) [Concomitant]
  5. ACTONEL [Concomitant]

REACTIONS (1)
  - DRUG INEFFECTIVE [None]
